FAERS Safety Report 22521243 (Version 1)
Quarter: 2023Q2

REPORT INFORMATION
  Report Type: Spontaneous
  Country: US (occurrence: None)
  Receive Date: 20230605
  Receipt Date: 20230605
  Transmission Date: 20230722
  Serious: Yes (Death)
  Sender: FDA-Public Use
  Company Number: None

PATIENT
  Age: 82 Year
  Sex: Male
  Weight: 98.55 kg

DRUGS (12)
  1. DIETARY SUPPLEMENT [Suspect]
     Active Substance: DIETARY SUPPLEMENT
     Indication: Memory impairment
     Dosage: OTHER QUANTITY : 1 CAPSULE(S);?
     Route: 048
     Dates: start: 20230405, end: 20230415
  2. METOPROLOL [Concomitant]
     Active Substance: METOPROLOL
  3. ASPIRIN [Concomitant]
     Active Substance: ASPIRIN
  4. GLIPIZIDE [Concomitant]
     Active Substance: GLIPIZIDE
  5. LASIX [Concomitant]
     Active Substance: FUROSEMIDE
  6. ELIQUIS [Concomitant]
     Active Substance: APIXABAN
  7. VITAMIN D3 [Concomitant]
     Active Substance: CHOLECALCIFEROL
  8. ALLOPURINOL [Concomitant]
     Active Substance: ALLOPURINOL
  9. CRESTOR [Concomitant]
     Active Substance: ROSUVASTATIN CALCIUM
  10. ZYRTEC [Concomitant]
     Active Substance: CETIRIZINE HYDROCHLORIDE
  11. STOOL SOFTENER (DOCUSATE) [Concomitant]
     Active Substance: DOCUSATE
  12. MIRALAX [Concomitant]
     Active Substance: POLYETHYLENE GLYCOL 3350

REACTIONS (15)
  - Decreased appetite [None]
  - Therapy interrupted [None]
  - Fall [None]
  - Skin injury [None]
  - Wound [None]
  - Renal impairment [None]
  - Faeces discoloured [None]
  - Gastrointestinal disorder [None]
  - Sepsis [None]
  - Blood pressure decreased [None]
  - Haematochezia [None]
  - Renal failure [None]
  - Pulmonary oedema [None]
  - Multiple organ dysfunction syndrome [None]
  - Gastric haemorrhage [None]

NARRATIVE: CASE EVENT DATE: 20230415
